FAERS Safety Report 14651404 (Version 1)
Quarter: 2018Q1

REPORT INFORMATION
  Report Type: Spontaneous
  Country: US (occurrence: US)
  Receive Date: 20180316
  Receipt Date: 20180316
  Transmission Date: 20180509
  Serious: Yes (Hospitalization)
  Sender: FDA-Public Use
  Company Number: None

PATIENT
  Age: 17 Year
  Sex: Female
  Weight: 56.25 kg

DRUGS (1)
  1. COPAXONE [Suspect]
     Active Substance: GLATIRAMER ACETATE
     Indication: MULTIPLE SCLEROSIS
     Dosage: ?          QUANTITY:1 INJECTION(S);OTHER FREQUENCY:3 TIMES A WEEK;?
     Route: 058
     Dates: start: 20100601

REACTIONS (2)
  - Dyskinesia [None]
  - Muscle twitching [None]

NARRATIVE: CASE EVENT DATE: 20170408
